FAERS Safety Report 7345069-X (Version None)
Quarter: 2011Q1

REPORT INFORMATION
  Report Type: 
  Country: None (occurrence: None)
  Receive Date: 20110310
  Receipt Date: 20110228
  Transmission Date: 20110831
  Serious: Yes (Hospitalization, Other)
  Sender: FDA-Public Use
  Company Number: US-ELI_LILLY_AND_COMPANY-US201008008536

PATIENT
  Sex: Female

DRUGS (28)
  1. FORTEO [Suspect]
     Indication: OSTEOPOROSIS
     Dosage: 20 UG, DAILY (1/D)
     Route: 065
     Dates: start: 20100819, end: 20100908
  2. LISINOPRIL [Concomitant]
     Dosage: 20/2.5MG, DAILY
     Route: 065
  3. MULTI-VITAMIN [Concomitant]
     Dosage: UNK, DAILY (1/D)
     Route: 065
  4. LEVOXYL [Concomitant]
     Dosage: 100 MG, DAILY (1/D) 6 DAYS PER WEEK
  5. PRAVASTAN [Concomitant]
     Dosage: UNK, UNKNOWN
  6. OPIUM TINCTURE [Concomitant]
     Dosage: UNK, UNKNOWN
  7. HYDROCHLOROTHIAZIDE [Concomitant]
     Dosage: UNK, UNKNOWN
  8. LEVOTHYROXINE SODIUM [Concomitant]
     Dosage: UNK, UNKNOWN
  9. BONIVA [Concomitant]
     Dosage: 150 MG, MONTHLY (1/M)
     Route: 065
  10. SPIRIVA [Concomitant]
     Dosage: 1 PUFF, DAILY (1/D)
     Route: 065
  11. ALBUTEROL [Concomitant]
     Dosage: 2 PUFFS UP TO 3/D
     Route: 065
  12. ZINC [Concomitant]
     Dosage: 50 MG, DAILY (1/D)
     Route: 065
  13. LOVAZA [Concomitant]
     Dosage: UNK, 2/D
     Route: 065
  14. GENTEAL [Concomitant]
     Dosage: 1 DROP, EACH EVENING
  15. FORTEO [Suspect]
     Dosage: 20 UG, DAILY (1/D)
     Dates: start: 20100920
  16. VITAMIN D [Concomitant]
     Dosage: 1000 IU, 2/D
     Route: 065
  17. ANTIBIOTICS [Concomitant]
     Indication: PNEUMONIA
     Dosage: UNK, UNKNOWN
     Route: 042
  18. MYSOLINE [Concomitant]
     Dosage: 50MG 0.5MG, 2/D
     Route: 065
  19. TRAMADOL HCL [Concomitant]
     Indication: PAIN
     Dosage: 50 MG, 1 OR 2 TABLETS EVERY 8 HRS AS NEEDED
  20. GABAPENTIN [Concomitant]
     Dosage: 300 MG, 2 CAPSULES 3/D
     Route: 065
  21. ACYCLOVIR [Concomitant]
     Dosage: UNK, UNKNOWN
  22. HYOSCYAMINE [Concomitant]
     Dosage: 0.125 MG, 1 OR 2 TABLETS UNDER THE TONGUE AS NEEDED
     Route: 048
  23. GENTEAL [Concomitant]
     Dosage: 1 DROP, EACH MORNING
  24. CALCITONIN [Concomitant]
     Dosage: 200 IU, 1 PUFF DAILY (1/D)
     Route: 045
  25. IBUPROFEN [Concomitant]
     Dosage: 800 MG, AS NEEDED
     Route: 065
  26. CALCIUM [Concomitant]
     Dosage: 1200 MG, 2/D
     Route: 065
  27. SALINE [Concomitant]
     Indication: DEHYDRATION
     Dosage: UNK, UNKNOWN
     Route: 065
  28. PANTOPRAZOLE SODIUM [Concomitant]
     Dosage: 40 MG, DAILY (1/D)
     Route: 065

REACTIONS (4)
  - DEHYDRATION [None]
  - DRUG DOSE OMISSION [None]
  - LUMBAR VERTEBRAL FRACTURE [None]
  - PNEUMONIA [None]
